FAERS Safety Report 25894325 (Version 1)
Quarter: 2025Q4

REPORT INFORMATION
  Report Type: Spontaneous
  Country: US (occurrence: US)
  Receive Date: 20251008
  Receipt Date: 20251008
  Transmission Date: 20260117
  Serious: No
  Sender: KARYOPHARM THERAPEUTICS
  Company Number: US-KARYOPHARM-2025KPT100795

PATIENT

DRUGS (13)
  1. SELINEXOR [Suspect]
     Active Substance: SELINEXOR
     Indication: Brain neoplasm malignant
     Dosage: 40 MG WEEKLY
     Route: 048
  2. ASPIRIN [Concomitant]
     Active Substance: ASPIRIN
  3. ATORVASTATIN [Concomitant]
     Active Substance: ATORVASTATIN
  4. AVODART [Concomitant]
     Active Substance: DUTASTERIDE
  5. DEXAMETHASONE [Concomitant]
     Active Substance: DEXAMETHASONE
  6. FLECAINIDE [Concomitant]
     Active Substance: FLECAINIDE
  7. LORAZEPAM [Concomitant]
     Active Substance: LORAZEPAM
  8. MEMANTINE [Concomitant]
     Active Substance: MEMANTINE
  9. ONDANSETRON [Concomitant]
     Active Substance: ONDANSETRON
  10. PROPRANOLOL [Concomitant]
     Active Substance: PROPRANOLOL HYDROCHLORIDE
  11. PROVIGIL [Concomitant]
     Active Substance: MODAFINIL
  12. TEMOZOLOMIDE [Concomitant]
     Active Substance: TEMOZOLOMIDE
  13. ZOLOFT [Concomitant]
     Active Substance: SERTRALINE HYDROCHLORIDE

REACTIONS (3)
  - Product dose omission issue [Unknown]
  - No adverse event [Unknown]
  - Off label use [Unknown]
